FAERS Safety Report 9261688 (Version 1)
Quarter: 2013Q2

REPORT INFORMATION
  Report Type: Spontaneous
  Country: CO (occurrence: CO)
  Receive Date: 20130429
  Receipt Date: 20130429
  Transmission Date: 20140414
  Serious: Yes (Death, Hospitalization)
  Sender: FDA-Public Use
  Company Number: CO-ABBOTT-13P-036-1082658-00

PATIENT
  Age: 37 Year
  Sex: Male
  Weight: 82 kg

DRUGS (1)
  1. HUMIRA [Suspect]
     Indication: PSORIASIS
     Route: 058
     Dates: start: 20081106, end: 20130221

REACTIONS (6)
  - Pulmonary oedema [Fatal]
  - Multiple injuries [Fatal]
  - Chest injury [Fatal]
  - Encephalitis [Fatal]
  - Pancreatic haemorrhage [Fatal]
  - Road traffic accident [Unknown]
